FAERS Safety Report 9346286 (Version 1)
Quarter: 2013Q2

REPORT INFORMATION
  Report Type: Spontaneous
  Country: US (occurrence: US)
  Receive Date: 20130613
  Receipt Date: 20130613
  Transmission Date: 20140414
  Serious: No
  Sender: FDA-Public Use
  Company Number: US-US-EMD SERONO, INC.-7016046

PATIENT
  Sex: Female

DRUGS (2)
  1. ZORBTIVE [Suspect]
     Indication: CHILD MALTREATMENT SYNDROME
     Dates: start: 2007
  2. GLUTAMINE [Suspect]
     Indication: PRODUCT USED FOR UNKNOWN INDICATION

REACTIONS (4)
  - Tremor [Unknown]
  - Retching [Unknown]
  - Blood glucose decreased [Recovering/Resolving]
  - Oedema [Unknown]
